FAERS Safety Report 5782075-0 (Version None)
Quarter: 2008Q2

REPORT INFORMATION
  Report Type: 
  Country: None (occurrence: None)
  Receive Date: 20080623
  Receipt Date: 20080612
  Transmission Date: 20081010
  Serious: Yes (Hospitalization)
  Sender: FDA-Public Use
  Company Number: FR-JNJFOC-20080602974

PATIENT
  Sex: Male

DRUGS (7)
  1. RISPERDAL [Suspect]
     Indication: AGITATION
     Route: 048
  2. STABLON [Suspect]
     Indication: DEPRESSION
     Route: 048
  3. NAFTIDROFURYL [Concomitant]
  4. SIMVASTATIN [Concomitant]
  5. PROPOFAN [Concomitant]
  6. IMOVANE [Concomitant]
  7. ASPIRIN [Concomitant]

REACTIONS (2)
  - CONFUSIONAL STATE [None]
  - PSYCHOMOTOR SKILLS IMPAIRED [None]
